FAERS Safety Report 13900586 (Version 1)
Quarter: 2017Q3

REPORT INFORMATION
  Report Type: Spontaneous
  Country: US (occurrence: None)
  Receive Date: 20170820
  Receipt Date: 20170820
  Transmission Date: 20171127
  Serious: Yes (Death)
  Sender: FDA-Public Use
  Company Number: None

PATIENT
  Age: 84 Year
  Sex: Female
  Weight: 59.7 kg

DRUGS (1)
  1. LUMASON [Suspect]
     Active Substance: SULFUR HEXAFLUORIDE
     Indication: ECHOCARDIOGRAM
     Route: 042
     Dates: start: 20170511

REACTIONS (3)
  - Seizure [None]
  - Cardio-respiratory arrest [None]
  - Respiratory arrest [None]

NARRATIVE: CASE EVENT DATE: 20170511
